FAERS Safety Report 11540423 (Version 1)
Quarter: 2015Q3

REPORT INFORMATION
  Report Type: Spontaneous
  Country: US (occurrence: US)
  Receive Date: 20150923
  Receipt Date: 20150923
  Transmission Date: 20151125
  Serious: No
  Sender: FDA-Public Use
  Company Number: US-BEH-2014045966

PATIENT
  Sex: Female
  Weight: 77.1 kg

DRUGS (19)
  1. DIPHENHYDRAMINE. [Concomitant]
     Active Substance: DIPHENHYDRAMINE
  2. ADDRERALL [Concomitant]
  3. ORAMORPH [Concomitant]
     Active Substance: MORPHINE SULFATE
  4. EPIPEN [Concomitant]
     Active Substance: EPINEPHRINE
  5. BACLOFEN. [Concomitant]
     Active Substance: BACLOFEN
  6. IMITREX [Concomitant]
     Active Substance: SUMATRIPTAN\SUMATRIPTAN SUCCINATE
  7. ACETAMINOPHEN. [Concomitant]
     Active Substance: ACETAMINOPHEN
  8. PROMETHAZINE [Concomitant]
     Active Substance: PROMETHAZINE\PROMETHAZINE HYDROCHLORIDE
  9. SAVELLA [Concomitant]
     Active Substance: MILNACIPRAN HYDROCHLORIDE
  10. CUTIVATE [Concomitant]
     Active Substance: FLUTICASONE PROPIONATE
  11. ATIVAN [Concomitant]
     Active Substance: LORAZEPAM
  12. SODIUM CHLORIDE. [Concomitant]
     Active Substance: SODIUM CHLORIDE
  13. BACTRIM [Concomitant]
     Active Substance: SULFAMETHOXAZOLE\TRIMETHOPRIM
  14. LYRICA [Concomitant]
     Active Substance: PREGABALIN
  15. PROVIGIL [Concomitant]
     Active Substance: MODAFINIL
  16. PRIVIGEN [Suspect]
     Active Substance: HUMAN IMMUNOGLOBULIN G
     Indication: HYPOGAMMAGLOBULINAEMIA
     Route: 042
  17. SYNTHROID [Concomitant]
     Active Substance: LEVOTHYROXINE SODIUM
  18. ORAMORPH [Concomitant]
     Active Substance: MORPHINE SULFATE
  19. PRIVIGEN [Suspect]
     Active Substance: HUMAN IMMUNOGLOBULIN G
     Indication: HYPOGAMMAGLOBULINAEMIA
     Route: 042

REACTIONS (2)
  - Chromaturia [Unknown]
  - Haematuria [Unknown]
